FAERS Safety Report 19651032 (Version 2)
Quarter: 2021Q3

REPORT INFORMATION
  Report Type: Report from Study
  Country: None (occurrence: UY)
  Receive Date: 20210802
  Receipt Date: 20210823
  Transmission Date: 20211014
  Serious: No
  Sender: FDA-Public Use
  Company Number: UY-ABBVIE-21K-168-4013778-00

PATIENT
  Age: 56 Year
  Sex: Female

DRUGS (1)
  1. RINVOQ [Suspect]
     Active Substance: UPADACITINIB
     Indication: RHEUMATOID ARTHRITIS
     Route: 048
     Dates: start: 20210417

REACTIONS (7)
  - Hypertension [Recovered/Resolved]
  - Rheumatoid arthritis [Not Recovered/Not Resolved]
  - Femoroacetabular impingement [Unknown]
  - Blood cholesterol increased [Unknown]
  - Thyroid function test abnormal [Unknown]
  - Hepatitis [Unknown]
  - Thyroid gland scan abnormal [Unknown]

NARRATIVE: CASE EVENT DATE: 2021
